FAERS Safety Report 25836608 (Version 1)
Quarter: 2025Q3

REPORT INFORMATION
  Report Type: Spontaneous
  Country: CN (occurrence: CN)
  Receive Date: 20250923
  Receipt Date: 20250923
  Transmission Date: 20251021
  Serious: Yes (Hospitalization, Other)
  Sender: BAXTER
  Company Number: None

PATIENT
  Age: 53 Year
  Sex: Female

DRUGS (4)
  1. CYCLOPHOSPHAMIDE [Suspect]
     Active Substance: CYCLOPHOSPHAMIDE
     Indication: Breast cancer female
     Dosage: 0.9 G, QD+ 0.9% NS 500ML
     Route: 041
     Dates: start: 20250825, end: 20250825
  2. SODIUM CHLORIDE [Suspect]
     Active Substance: SODIUM CHLORIDE
     Dosage: 500 ML, QD WITH CYCLOPHOSPHAMIDE
     Route: 041
     Dates: start: 20250825, end: 20250825
  3. SODIUM CHLORIDE [Suspect]
     Active Substance: SODIUM CHLORIDE
     Dosage: 250 ML, QD WITH EPIRUBICIN
     Route: 041
     Dates: start: 20250825, end: 20250825
  4. EPIRUBICIN HYDROCHLORIDE [Suspect]
     Active Substance: EPIRUBICIN HYDROCHLORIDE
     Indication: Breast cancer female
     Dosage: 130 MG, QD+ 0.9% NS 250ML
     Route: 041
     Dates: start: 20250825, end: 20250825

REACTIONS (5)
  - Myelosuppression [Recovered/Resolved]
  - Agranulocytosis [Recovering/Resolving]
  - White blood cell count decreased [Recovered/Resolved]
  - Neutrophil count decreased [Recovered/Resolved]
  - Platelet count decreased [Recovered/Resolved]

NARRATIVE: CASE EVENT DATE: 20250901
